FAERS Safety Report 5206913-5 (Version None)
Quarter: 2007Q1

REPORT INFORMATION
  Report Type: 
  Country: None (occurrence: None)
  Receive Date: 20070108
  Receipt Date: 20070108
  Transmission Date: 20070707
  Serious: No
  Sender: FDA-Public Use
  Company Number: None

PATIENT

DRUGS (1)
  1. TIKOSYN [Suspect]

REACTIONS (3)
  - ABDOMINAL DISTENSION [None]
  - RENAL FAILURE [None]
  - WEIGHT INCREASED [None]
